FAERS Safety Report 7832869-2 (Version None)
Quarter: 2011Q4

REPORT INFORMATION
  Report Type: 
  Country: None (occurrence: None)
  Receive Date: 20111024
  Receipt Date: 20111020
  Transmission Date: 20120403
  Serious: Yes (Death, Hospitalization)
  Sender: FDA-Public Use
  Company Number: DE-BRISTOL-MYERS SQUIBB COMPANY-16085920

PATIENT
  Age: 58 Year
  Sex: Male
  Weight: 66 kg

DRUGS (4)
  1. CISPLATIN [Suspect]
     Indication: HEAD AND NECK CANCER
     Dates: start: 20110819, end: 20110928
  2. FLUOROURACIL [Suspect]
     Indication: HEAD AND NECK CANCER
     Dates: start: 20110819, end: 20110928
  3. CETUXIMAB [Suspect]
     Indication: HEAD AND NECK CANCER
     Dosage: 1DF= CYC 2, 24JUN11-8JUL11(14D), CYC 3, 15JUL11-5AUG11(21D), CYC 4, 12AUG11-26AUG11(14D)
     Dates: start: 20110603, end: 20110826
  4. DOCETAXEL [Suspect]
     Indication: HEAD AND NECK CANCER
     Dates: start: 20110819, end: 20110928

REACTIONS (2)
  - HYPOKALAEMIA [None]
  - NEOPLASM MALIGNANT [None]
